FAERS Safety Report 19906563 (Version 1)
Quarter: 2021Q4

REPORT INFORMATION
  Report Type: Spontaneous
  Country: US (occurrence: US)
  Receive Date: 20211001
  Receipt Date: 20211001
  Transmission Date: 20220303
  Serious: No
  Sender: FDA-Public Use
  Company Number: None

PATIENT
  Age: 19 Year
  Sex: Female
  Weight: 74.5 kg

DRUGS (3)
  1. PALYNZIQ [Suspect]
     Active Substance: PEGVALIASE-PQPZ
     Indication: Phenylketonuria
     Dosage: ?          OTHER FREQUENCY:WEEKLY;
     Route: 058
     Dates: start: 20210716
  2. ZYRTEC [Concomitant]
     Active Substance: CETIRIZINE HYDROCHLORIDE
     Dates: start: 20210712
  3. PEPCID [Concomitant]
     Active Substance: FAMOTIDINE
     Dates: start: 20210712

REACTIONS (2)
  - Injection site swelling [None]
  - Therapy change [None]

NARRATIVE: CASE EVENT DATE: 20200724
